FAERS Safety Report 8230206-5 (Version None)
Quarter: 2012Q1

REPORT INFORMATION
  Report Type: 
  Country: None (occurrence: None)
  Receive Date: 20120321
  Receipt Date: 20120321
  Transmission Date: 20120608
  Serious: Yes (Hospitalization)
  Sender: FDA-Public Use
  Company Number: None

PATIENT
  Sex: Female
  Weight: 105.2 kg

DRUGS (2)
  1. TAXOL [Suspect]
     Dosage: 349.98 MG
  2. CARBOPLATIN [Suspect]
     Dosage: 736 MG

REACTIONS (6)
  - DIZZINESS [None]
  - MUSCULOSKELETAL PAIN [None]
  - NAUSEA [None]
  - CHEST PAIN [None]
  - NEUROPATHY PERIPHERAL [None]
  - FATIGUE [None]
